FAERS Safety Report 6750473-4 (Version None)
Quarter: 2010Q2

REPORT INFORMATION
  Report Type: 
  Country: None (occurrence: None)
  Receive Date: 20100527
  Receipt Date: 20100513
  Transmission Date: 20101027
  Serious: Yes (Hospitalization)
  Sender: FDA-Public Use
  Company Number: AUR-APL-2010-01299

PATIENT
  Age: 58 Year
  Sex: Male

DRUGS (6)
  1. CIPROFLOXACIN [Suspect]
     Indication: WOUND INFECTION
     Dosage: 500MG - BID - ORAL
     Route: 048
  2. ATORVASTATIN [Suspect]
     Dosage: 40MG - ^NOCTE^
  3. FUSIDIC ACID [Suspect]
     Indication: WOUND INFECTION
     Dosage: 500MG - TID - ORAL
     Route: 048
  4. BISOPROLOL [Concomitant]
  5. FRUSEMIDE [Concomitant]
  6. ASPIRIN [Concomitant]

REACTIONS (10)
  - BODY TEMPERATURE DECREASED [None]
  - DRUG INTERACTION [None]
  - DYSPNOEA [None]
  - LEFT VENTRICULAR DYSFUNCTION [None]
  - LIVEDO RETICULARIS [None]
  - OXYGEN SATURATION DECREASED [None]
  - PERIPHERAL COLDNESS [None]
  - RENAL FAILURE [None]
  - RHABDOMYOLYSIS [None]
  - VENTRICULAR EXTRASYSTOLES [None]
